FAERS Safety Report 4833198-1 (Version None)
Quarter: 2005Q4

REPORT INFORMATION
  Report Type: 
  Country: None (occurrence: None)
  Receive Date: 20051121
  Receipt Date: 20051110
  Transmission Date: 20060501
  Serious: Yes (Hospitalization, Other)
  Sender: FDA-Public Use
  Company Number: JP-JNJFOC-20051002226

PATIENT
  Age: 84 Year
  Sex: Female

DRUGS (1)
  1. FENTANYL CITRATE [Suspect]
     Route: 062

REACTIONS (8)
  - BRAIN DAMAGE [None]
  - DEPRESSED LEVEL OF CONSCIOUSNESS [None]
  - DRUG ADMINISTRATION ERROR [None]
  - EXTRAPYRAMIDAL DISORDER [None]
  - HYPOXIA [None]
  - MENTAL STATUS CHANGES [None]
  - NARCOTIC INTOXICATION [None]
  - NERVE INJURY [None]
